FAERS Safety Report 8020913-1 (Version None)
Quarter: 2011Q4

REPORT INFORMATION
  Report Type: 
  Country: None (occurrence: None)
  Receive Date: 20111228
  Receipt Date: 20111213
  Transmission Date: 20120403
  Serious: Yes (Hospitalization, Other)
  Sender: FDA-Public Use
  Company Number: 2011S1001679

PATIENT
  Age: 48 Year
  Sex: Male

DRUGS (7)
  1. LIVALO [Suspect]
     Indication: HYPERLIPIDAEMIA
     Dosage: 1 MG; 1X; PO
     Route: 048
     Dates: start: 20110919, end: 20111019
  2. PLAVIX [Suspect]
     Indication: MYOCARDIAL INFARCTION
     Dosage: 75 MG; 1X; PO
     Route: 048
     Dates: start: 20110919, end: 20111025
  3. SIGMART [Concomitant]
  4. BISOPROLOL FUMARATE [Concomitant]
  5. ASPIRIN [Concomitant]
  6. LANSOPRAZOLE [Concomitant]
  7. IRBESARTAN [Concomitant]

REACTIONS (2)
  - FEELING ABNORMAL [None]
  - RHABDOMYOLYSIS [None]
